FAERS Safety Report 6988449-4 (Version None)
Quarter: 2010Q3

REPORT INFORMATION
  Report Type: 
  Country: None (occurrence: None)
  Receive Date: 20100916
  Receipt Date: 20100908
  Transmission Date: 20110219
  Serious: Yes (Hospitalization, Disabling)
  Sender: FDA-Public Use
  Company Number: GB-TEVA-247958ISR

PATIENT
  Age: 68 Year
  Sex: Female

DRUGS (1)
  1. PREDNISOLONE [Suspect]
     Indication: MICROSCOPIC POLYANGIITIS
     Route: 048

REACTIONS (13)
  - BLINDNESS UNILATERAL [None]
  - C-REACTIVE PROTEIN INCREASED [None]
  - EPISCLERITIS [None]
  - HEADACHE [None]
  - HYPOGLOSSAL NERVE PARALYSIS [None]
  - OPTIC ATROPHY [None]
  - PACHYMENINGITIS [None]
  - PRURITUS [None]
  - PUPILLARY REFLEX IMPAIRED [None]
  - RED BLOOD CELL SEDIMENTATION RATE INCREASED [None]
  - VISUAL ACUITY REDUCED [None]
  - VISUAL IMPAIRMENT [None]
  - VITH NERVE PARALYSIS [None]
